FAERS Safety Report 13535745 (Version 1)
Quarter: 2017Q2

REPORT INFORMATION
  Report Type: Spontaneous
  Country: GB (occurrence: GB)
  Receive Date: 20170511
  Receipt Date: 20170511
  Transmission Date: 20170830
  Serious: Yes (Hospitalization)
  Sender: FDA-Public Use
  Company Number: GB-JNJFOC-20170504975

PATIENT
  Age: 39 Year
  Sex: Female
  Weight: 55 kg

DRUGS (2)
  1. IBUPROFEN. [Suspect]
     Active Substance: IBUPROFEN
     Route: 065
  2. IBUPROFEN. [Suspect]
     Active Substance: IBUPROFEN
     Indication: PRODUCT USED FOR UNKNOWN INDICATION
     Route: 065
     Dates: start: 20170422

REACTIONS (2)
  - Dyspnoea [Recovered/Resolved with Sequelae]
  - Swelling [Recovered/Resolved with Sequelae]

NARRATIVE: CASE EVENT DATE: 20170422
